FAERS Safety Report 4471536-2 (Version None)
Quarter: 2004Q4

REPORT INFORMATION
  Report Type: 
  Country: None (occurrence: None)
  Receive Date: 20041012
  Receipt Date: 20041007
  Transmission Date: 20050328
  Serious: Yes (Death, Other)
  Sender: FDA-Public Use
  Company Number: PHNU2004DE03460

PATIENT
  Age: 43 Year
  Sex: Female

DRUGS (2)
  1. AREDIA [Suspect]
     Indication: BREAST CANCER METASTATIC
     Dosage: ^MONTHLY^
     Dates: start: 20000701, end: 20020301
  2. ZOMETA [Suspect]
     Indication: BREAST CANCER METASTATIC
     Dosage: 4 MG, QMO
     Dates: start: 20020301, end: 20040101

REACTIONS (4)
  - BONE INFECTION [None]
  - BONE OPERATION [None]
  - HEPATIC FAILURE [None]
  - METASTASES TO LIVER [None]
